FAERS Safety Report 9385020 (Version 1)
Quarter: 2013Q3

REPORT INFORMATION
  Report Type: Spontaneous
  Country: US (occurrence: US)
  Receive Date: 20130705
  Receipt Date: 20130705
  Transmission Date: 20140515
  Serious: Yes (Hospitalization)
  Sender: FDA-Public Use
  Company Number: US-GLAXOSMITHKLINE-A1024744A

PATIENT
  Age: 31 Year
  Sex: Female

DRUGS (26)
  1. BENLYSTA [Suspect]
     Indication: SYSTEMIC LUPUS ERYTHEMATOSUS
     Dosage: 800MG CYCLIC
     Route: 042
     Dates: start: 201210
  2. IMITREX [Suspect]
     Indication: PRODUCT USED FOR UNKNOWN INDICATION
     Route: 065
  3. IMITREX [Suspect]
     Indication: PRODUCT USED FOR UNKNOWN INDICATION
     Route: 065
  4. PLAQUENIL [Concomitant]
  5. METHOTREXATE [Concomitant]
  6. NEURONTIN [Concomitant]
  7. CYMBALTA [Concomitant]
  8. AMBIEN [Concomitant]
  9. COLACE [Concomitant]
  10. REGLAN [Concomitant]
  11. ZOFRAN [Concomitant]
  12. SKELAXIN [Concomitant]
  13. CELEXA [Concomitant]
  14. NORVASC [Concomitant]
  15. FISH OIL [Concomitant]
  16. PREDNISONE [Concomitant]
  17. LASIX [Concomitant]
  18. SYNTHROID [Concomitant]
  19. LISINOPRIL [Concomitant]
  20. ADVAIR [Concomitant]
  21. ALBUTEROL [Concomitant]
  22. TOPROL [Concomitant]
  23. ATARAX [Concomitant]
  24. CALCIUM [Concomitant]
  25. VITAMIN D [Concomitant]
  26. IBUPROFEN [Concomitant]

REACTIONS (10)
  - Migraine [Unknown]
  - Chest pain [Unknown]
  - Fatigue [Unknown]
  - Drug ineffective [Unknown]
  - Headache [Unknown]
  - Weight increased [Not Recovered/Not Resolved]
  - Pruritus generalised [Recovering/Resolving]
  - Burning sensation [Recovering/Resolving]
  - Feeling abnormal [Not Recovered/Not Resolved]
  - Pain [Recovering/Resolving]
